FAERS Safety Report 9451585 (Version 1)
Quarter: 2013Q3

REPORT INFORMATION
  Report Type: Spontaneous
  Country: IT (occurrence: IT)
  Receive Date: 20130811
  Receipt Date: 20130811
  Transmission Date: 20140515
  Serious: Yes (Death)
  Sender: FDA-Public Use
  Company Number: IT-CUBIST PHARMACEUTICAL, INC.-2013CBST000252

PATIENT
  Sex: 0

DRUGS (1)
  1. CUBICIN [Suspect]
     Indication: STAPHYLOCOCCAL INFECTION
     Dosage: 8 MG/KG, Q24H
     Route: 041

REACTIONS (1)
  - Death [Fatal]
